FAERS Safety Report 24426038 (Version 1)
Quarter: 2024Q4

REPORT INFORMATION
  Report Type: Spontaneous
  Country: HR (occurrence: HR)
  Receive Date: 20241011
  Receipt Date: 20241011
  Transmission Date: 20250114
  Serious: Yes (Other)
  Sender: SANDOZ
  Company Number: None

PATIENT
  Age: 47 Year
  Sex: Female

DRUGS (6)
  1. ALLOPURINOL [Suspect]
     Active Substance: ALLOPURINOL
     Indication: Product used for unknown indication
     Dosage: DF = 3 TABLETE ALOPURINOLA
     Route: 048
     Dates: start: 20240810, end: 20240810
  2. BISOPROLOL FUMARATE [Suspect]
     Active Substance: BISOPROLOL FUMARATE
     Indication: Product used for unknown indication
     Dosage: 185.000MG QD
     Route: 048
     Dates: start: 20240810, end: 20240810
  3. INDAPAMIDE\PERINDOPRIL ERBUMINE [Suspect]
     Active Substance: INDAPAMIDE\PERINDOPRIL ERBUMINE
     Indication: Product used for unknown indication
     Dosage: DF= 2,5 MG INDAPAMIDE + 8 MG PERINDOPRIL ERBUMINE
     Route: 048
     Dates: start: 20240810, end: 20240810
  4. KETOPROFEN [Suspect]
     Active Substance: KETOPROFEN
     Indication: Product used for unknown indication
     Dosage: DF = 3 TABLETE KETONALA
     Route: 048
     Dates: start: 20240810, end: 20240810
  5. ACETAMINOPHEN [Suspect]
     Active Substance: ACETAMINOPHEN
     Indication: Product used for unknown indication
     Dosage: 2.000G QD
     Route: 048
     Dates: start: 20240810, end: 20240810
  6. ACETAMINOPHEN\TRAMADOL HYDROCHLORIDE [Suspect]
     Active Substance: ACETAMINOPHEN\TRAMADOL HYDROCHLORIDE
     Indication: Product used for unknown indication
     Dosage: DF= 325MG PARACETAMOL + 37,5MG TRAMADOL HYDROCHLORIDE
     Route: 048
     Dates: start: 20240810, end: 20240810

REACTIONS (4)
  - Somnolence [Unknown]
  - Sluggishness [Unknown]
  - Suicide attempt [Unknown]
  - Intentional overdose [Unknown]

NARRATIVE: CASE EVENT DATE: 20240810
